FAERS Safety Report 15891053 (Version 2)
Quarter: 2019Q1

REPORT INFORMATION
  Report Type: Report from Study
  Country: DE (occurrence: DE)
  Receive Date: 20190130
  Receipt Date: 20190205
  Transmission Date: 20190417
  Serious: Yes (Hospitalization)
  Sender: FDA-Public Use
  Company Number: DE-MYLANLABS-2019M1007554

PATIENT
  Age: 42 Year
  Sex: Male
  Weight: 125 kg

DRUGS (1)
  1. CLIFT(GLATIRAMER ACETATE) [Suspect]
     Active Substance: GLATIRAMER ACETATE
     Indication: MULTIPLE SCLEROSIS
     Dosage: 40 MILLIGRAM, 3XW
     Route: 058
     Dates: start: 20181217, end: 20190124

REACTIONS (7)
  - Erythema [Recovering/Resolving]
  - Injection site haemorrhage [Recovering/Resolving]
  - Hypersensitivity [Recovered/Resolved]
  - Vomiting [Recovering/Resolving]
  - Burning sensation [Recovering/Resolving]
  - Chest discomfort [Recovering/Resolving]
  - Swelling face [Recovering/Resolving]

NARRATIVE: CASE EVENT DATE: 20190124
